FAERS Safety Report 10960485 (Version 1)
Quarter: 2015Q1

REPORT INFORMATION
  Report Type: Spontaneous
  Country: US (occurrence: None)
  Receive Date: 20150326
  Receipt Date: 20150326
  Transmission Date: 20150721
  Serious: No
  Sender: FDA-Public Use
  Company Number: None

PATIENT
  Age: 73 Year

DRUGS (11)
  1. PRAMLPEXOLE [Concomitant]
  2. DONEPEZIL [Concomitant]
     Active Substance: DONEPEZIL
  3. CARBIDOPA/LEVADOPA [Concomitant]
  4. VIT. C [Concomitant]
  5. MIDODRINE [Concomitant]
     Active Substance: MIDODRINE
  6. TAMSULOSIN [Concomitant]
     Active Substance: TAMSULOSIN
  7. METFORMIN [Concomitant]
     Active Substance: METFORMIN HYDROCHLORIDE
  8. JANVUVIA [Concomitant]
  9. BABY ASA [Concomitant]
     Active Substance: ASPIRIN
  10. ZELBORAF [Suspect]
     Active Substance: VEMURAFENIB
     Indication: MALIGNANT MELANOMA
     Route: 048
     Dates: start: 20150226
  11. MULT [Concomitant]

REACTIONS (1)
  - Dyskinesia [None]

NARRATIVE: CASE EVENT DATE: 20150324
